FAERS Safety Report 9839962 (Version 1)
Quarter: 2013Q4

REPORT INFORMATION
  Report Type: Spontaneous
  Country: US (occurrence: None)
  Receive Date: 20131206
  Receipt Date: 20131206
  Transmission Date: 20140711
  Serious: Yes (Other)
  Sender: FDA-Public Use
  Company Number: 370282

PATIENT
  Age: 15 Year
  Sex: Male

DRUGS (2)
  1. NOVOLOG [Suspect]
     Indication: TYPE 2 DIABETES MELLITUS
     Dosage: BOLUS AT 1 1/2 UNITS PER CARB COUNT PER MEAL, SUBCUTAN-PUMP
  2. LANTUS (INSULIN GLARGINE) [Suspect]
     Dosage: NIGHTLY
     Route: 058
     Dates: start: 200704

REACTIONS (2)
  - Hypoglycaemic seizure [None]
  - Blood glucose increased [None]
